FAERS Safety Report 23978305 (Version 2)
Quarter: 2024Q3

REPORT INFORMATION
  Report Type: Spontaneous
  Country: JP (occurrence: JP)
  Receive Date: 20240614
  Receipt Date: 20240717
  Transmission Date: 20241017
  Serious: Yes (Hospitalization, Other)
  Sender: SUNOVION
  Company Number: JP-DSPHARMA-2024SMP008416

PATIENT

DRUGS (5)
  1. LATUDA [Suspect]
     Active Substance: LURASIDONE HYDROCHLORIDE
     Indication: Schizophrenia
     Dosage: 20 MG, QD
     Route: 048
     Dates: start: 20240601, end: 20240602
  2. BLONANSERIN [Suspect]
     Active Substance: BLONANSERIN
     Indication: Product used for unknown indication
     Dosage: 20 MG, QD
     Route: 062
  3. BELSOMRA [Concomitant]
     Active Substance: SUVOREXANT
     Indication: Insomnia
     Dosage: 15 MG, QD
     Route: 065
     Dates: start: 20230322, end: 20240602
  4. SEROQUEL [Concomitant]
     Active Substance: QUETIAPINE FUMARATE
     Indication: Schizophrenia
     Dosage: 125 MG, QD
     Route: 065
     Dates: start: 20230322, end: 20240602
  5. Benzalin [Concomitant]
     Indication: Insomnia
     Dosage: 10 MG, QD
     Route: 065
     Dates: start: 20230322, end: 20240602

REACTIONS (5)
  - Altered state of consciousness [Recovering/Resolving]
  - Blood pressure decreased [Unknown]
  - Off label use [Unknown]
  - Prescribed underdose [Unknown]
  - Off label use [Unknown]

NARRATIVE: CASE EVENT DATE: 20240601
